FAERS Safety Report 6491530-X (Version None)
Quarter: 2009Q4

REPORT INFORMATION
  Report Type: 
  Country: None (occurrence: None)
  Receive Date: 20091211
  Receipt Date: 20091127
  Transmission Date: 20100525
  Serious: Yes (Other)
  Sender: FDA-Public Use
  Company Number: FR-PFIZER INC-2009306136

PATIENT
  Age: 61 Year
  Sex: Female
  Weight: 90 kg

DRUGS (8)
  1. TAHOR [Suspect]
     Dosage: 10 MG, UNK
     Dates: start: 20090801
  2. NEBIVOLOL [Concomitant]
  3. AMLOR [Concomitant]
  4. FLECAINIDE ACETATE [Concomitant]
     Dosage: 100 MG, UNK
  5. KARDEGIC [Concomitant]
  6. METHOCARBAMOL [Concomitant]
  7. CALCIPRAT [Concomitant]
  8. DI-ANTALVIC [Concomitant]
     Dosage: 6 PER DAY
     Dates: start: 20070101

REACTIONS (1)
  - GAMMA-GLUTAMYLTRANSFERASE INCREASED [None]
